FAERS Safety Report 6107986-8 (Version None)
Quarter: 2009Q1

REPORT INFORMATION
  Report Type: 
  Country: None (occurrence: None)
  Receive Date: 20090309
  Receipt Date: 20090204
  Transmission Date: 20090719
  Serious: No
  Sender: FDA-Public Use
  Company Number: US-BAYER-200910452BCC

PATIENT
  Age: 61 Year
  Sex: Female
  Weight: 77 kg

DRUGS (11)
  1. ALEVE (CAPLET) [Suspect]
     Indication: FIBROMYALGIA
     Dosage: TOTAL DAILY DOSE: 1320 MG  UNIT DOSE: 220 MG
     Dates: end: 20090204
  2. AMBIEN [Concomitant]
  3. CYMBALTA [Concomitant]
  4. LISINOPRIL AND HYDROCHLOROTHIAZIDE [Concomitant]
  5. DARVOCET [Concomitant]
  6. VITAMIN D [Concomitant]
  7. MAGNESIUM SULFATE [Concomitant]
  8. OSCAL [Concomitant]
  9. VITAMIN E [Concomitant]
  10. ASCORBIC ACID [Concomitant]
  11. GLUCOSAMINE/MSM [Concomitant]

REACTIONS (1)
  - OEDEMA PERIPHERAL [None]
